FAERS Safety Report 24263224 (Version 4)
Quarter: 2024Q3

REPORT INFORMATION
  Report Type: Spontaneous
  Country: JP (occurrence: JP)
  Receive Date: 20240829
  Receipt Date: 20240918
  Transmission Date: 20241016
  Serious: Yes (Life-Threatening, Hospitalization, Other)
  Sender: MERCK
  Company Number: JP-MSD-2407JPN003226J

PATIENT
  Age: 75 Year
  Sex: Female

DRUGS (4)
  1. KEYTRUDA [Suspect]
     Active Substance: PEMBROLIZUMAB
     Indication: Uterine cancer
     Dosage: 200 MILLIGRAM, Q3W
     Route: 041
     Dates: start: 20240514, end: 20240514
  2. KEYTRUDA [Suspect]
     Active Substance: PEMBROLIZUMAB
     Dosage: 200 MILLIGRAM, Q3W
     Route: 041
     Dates: start: 20240710, end: 20240710
  3. LENVATINIB MESYLATE [Suspect]
     Active Substance: LENVATINIB MESYLATE
     Indication: Uterine cancer
     Dosage: 20 MILLIGRAM, QD
     Route: 048
     Dates: start: 20240514, end: 202405
  4. LENVATINIB MESYLATE [Suspect]
     Active Substance: LENVATINIB MESYLATE
     Dosage: 20 MILLIGRAM
     Route: 048
     Dates: start: 202406, end: 20240807

REACTIONS (21)
  - Pulmonary toxicity [Recovered/Resolved]
  - Hypothyroidism [Recovered/Resolved]
  - Renal impairment [Not Recovered/Not Resolved]
  - Nausea [Recovered/Resolved]
  - Malaise [Unknown]
  - Hypothyroidism [Recovered/Resolved]
  - Pyrexia [Recovered/Resolved]
  - Interstitial lung disease [Not Recovered/Not Resolved]
  - Pneumonia [Not Recovered/Not Resolved]
  - Dyspnoea [Unknown]
  - C-reactive protein increased [Unknown]
  - Peripheral swelling [Recovered/Resolved]
  - Pulmonary imaging procedure abnormal [Unknown]
  - Blood beta-D-glucan increased [Unknown]
  - Fungal infection [Unknown]
  - Hypertension [Recovered/Resolved]
  - Palmar-plantar erythrodysaesthesia syndrome [Recovering/Resolving]
  - Hepatic function abnormal [Recovered/Resolved]
  - Hypoaesthesia [Recovered/Resolved]
  - Epistaxis [Recovered/Resolved]
  - Pyrexia [Unknown]

NARRATIVE: CASE EVENT DATE: 20240101
